FAERS Safety Report 16262068 (Version 1)
Quarter: 2019Q2

REPORT INFORMATION
  Report Type: Spontaneous
  Country: US (occurrence: US)
  Receive Date: 20190501
  Receipt Date: 20190501
  Transmission Date: 20190711
  Serious: No
  Sender: FDA-Public Use
  Company Number: US-009507513-1904USA001071

PATIENT
  Age: 19 Year
  Sex: Male

DRUGS (2)
  1. PROPECIA [Suspect]
     Active Substance: FINASTERIDE
     Dosage: EVERY OTHER DAY
     Route: 048
     Dates: start: 2019, end: 20190327
  2. PROPECIA [Suspect]
     Active Substance: FINASTERIDE
     Indication: ALOPECIA
     Dosage: UNK
     Route: 048
     Dates: start: 20180427, end: 201811

REACTIONS (10)
  - Inappropriate schedule of product administration [Unknown]
  - Nausea [Unknown]
  - Feeding disorder [Unknown]
  - Drug ineffective [Unknown]
  - Anxiety [Not Recovered/Not Resolved]
  - Emotional disorder [Unknown]
  - Agitation [Unknown]
  - Feeling abnormal [Unknown]
  - Panic disorder [Not Recovered/Not Resolved]
  - Nervousness [Not Recovered/Not Resolved]

NARRATIVE: CASE EVENT DATE: 201807
